FAERS Safety Report 4617174-X (Version None)
Quarter: 2005Q1

REPORT INFORMATION
  Report Type: 
  Country: None (occurrence: None)
  Receive Date: 20050323
  Receipt Date: 20050315
  Transmission Date: 20050727
  Serious: Yes (Other)
  Sender: FDA-Public Use
  Company Number: GB-GLAXOSMITHKLINE-B0374895A

PATIENT
  Age: 77 Year
  Sex: Male
  Weight: 84 kg

DRUGS (30)
  1. AVANDIA [Suspect]
     Indication: DIABETES MELLITUS
     Dosage: 4MG IN THE MORNING
     Route: 048
     Dates: start: 20050119, end: 20050207
  2. AMLODIPINE [Concomitant]
     Dosage: 10MG PER DAY
     Route: 065
     Dates: start: 20050301
  3. TAMSULOSIN HYDROCHLORIDE [Concomitant]
     Dosage: 400MG ALTERNATE DAYS
     Route: 065
     Dates: start: 20011211
  4. METFORMIN HCL [Concomitant]
     Dosage: 1500MG TWICE PER DAY
     Route: 065
     Dates: start: 20041221
  5. FUROSEMIDE [Concomitant]
     Dosage: 20MG PER DAY
     Route: 065
     Dates: start: 20030311
  6. AMIODARONE HYDROCHLORIDE [Concomitant]
     Dosage: 200MG PER DAY
     Route: 065
     Dates: start: 20030322
  7. BENDROFLUMETHIAZIDE [Concomitant]
     Dosage: 2.5MG PER DAY
     Route: 065
     Dates: start: 20040812
  8. RANITIDINE [Concomitant]
     Dosage: 150MG TWICE PER DAY
     Route: 065
     Dates: start: 20040226
  9. LISINOPRIL [Concomitant]
     Dosage: 20MG PER DAY
     Route: 065
     Dates: start: 20031010
  10. PRAVASTATIN SODIUM [Concomitant]
     Dosage: 20MG PER DAY
     Route: 065
     Dates: start: 20000303
  11. LEVOTHYROXINE [Concomitant]
     Dosage: 25MCG PER DAY
     Route: 065
     Dates: start: 20050301
  12. WARFARIN SODIUM [Concomitant]
     Route: 065
     Dates: start: 20030322
  13. BETAMETHASONE VALERATE [Concomitant]
     Route: 065
     Dates: start: 20050208
  14. ROSIGLITAZONE [Concomitant]
     Dosage: 4MG PER DAY
     Route: 065
     Dates: start: 20050119
  15. GTN [Concomitant]
  16. BENZYDAMINE HYDROCHLORIDE [Concomitant]
     Dosage: 15ML CYCLIC
     Route: 065
  17. METRONIDAZOLE [Concomitant]
     Dosage: 200MG THREE TIMES PER DAY
     Route: 065
     Dates: start: 20030328
  18. NAPROXEN [Concomitant]
     Dosage: 500MG TWICE PER DAY
     Route: 065
     Dates: start: 20010117
  19. ALLOPURINOL [Concomitant]
     Dosage: 300 PER DAY
     Route: 065
     Dates: start: 20030226
  20. HYPROMELLOSE [Concomitant]
     Dosage: 2DROP AS REQUIRED
     Route: 047
     Dates: start: 20030213
  21. SILDENAFIL [Concomitant]
     Dosage: 100MG AS REQUIRED
     Route: 065
     Dates: start: 20021219
  22. BETNESOL [Concomitant]
     Dosage: 2DROP FOUR TIMES PER DAY
     Route: 065
     Dates: start: 20021126
  23. RABIPUR [Concomitant]
     Route: 065
     Dates: start: 20021016, end: 20021016
  24. CO-AMOXICLAV [Concomitant]
     Dosage: 500MG THREE TIMES PER DAY
     Route: 065
     Dates: start: 20020918
  25. VALACYCLOVIR HCL [Concomitant]
     Dosage: 1000MG TWICE PER DAY
     Route: 065
     Dates: start: 20020525
  26. FLOMAX [Concomitant]
     Dosage: 400MCG PER DAY
     Route: 065
     Dates: start: 20010814
  27. NITROLINGUAL PUMPSPRAY [Concomitant]
     Dosage: 2PUFF AS REQUIRED
     Dates: start: 20010906
  28. CHLORAMPHENICOL [Concomitant]
     Dosage: 1DROP CYCLIC
     Route: 047
     Dates: start: 20000918
  29. ZESTORETIC [Concomitant]
     Dosage: 1UNIT PER DAY
     Route: 065
     Dates: start: 20000404
  30. RAMIPRIL [Concomitant]
     Dosage: 10MG PER DAY
     Route: 065
     Dates: start: 20000320

REACTIONS (2)
  - DIARRHOEA [None]
  - PSORIASIS [None]
